FAERS Safety Report 24220796 (Version 1)
Quarter: 2024Q3

REPORT INFORMATION
  Report Type: Other
  Country: LB (occurrence: LB)
  Receive Date: 20240818
  Receipt Date: 20240818
  Transmission Date: 20241016
  Serious: Yes (Death)
  Sender: ORBION PHARMACEUTICALS
  Company Number: LB-OrBion Pharmaceuticals Private Limited-2160579

PATIENT
  Age: 53 Year
  Sex: Female

DRUGS (3)
  1. LEVOFLOXACIN [Suspect]
     Active Substance: LEVOFLOXACIN
     Indication: Respiratory distress
     Route: 065
  2. MEROPENEM [Suspect]
     Active Substance: MEROPENEM
     Route: 065
  3. VANCOMYCIN HYDROCHLORIDE [Suspect]
     Active Substance: VANCOMYCIN HYDROCHLORIDE
     Route: 065

REACTIONS (1)
  - Drug ineffective [Fatal]
